FAERS Safety Report 24389961 (Version 1)
Quarter: 2024Q4

REPORT INFORMATION
  Report Type: Spontaneous
  Country: IT (occurrence: IT)
  Receive Date: 20241003
  Receipt Date: 20241003
  Transmission Date: 20250115
  Serious: Yes (Other)
  Sender: AUROBINDO
  Company Number: IT-MINISAL02-1003347

PATIENT
  Age: 90 Year
  Sex: Male

DRUGS (2)
  1. METOPROLOL [Suspect]
     Active Substance: METOPROLOL
     Indication: Product used for unknown indication
     Dosage: 50 MILLIGRAM, ONCE A DAY(INITIAL PRESCRIPTION 50MG 2/DAY FROM 11/28/2020, THEN DECREASED TO ONCE A D
     Route: 048
     Dates: start: 20211027, end: 20240810
  2. TRAZODONE HYDROCHLORIDE [Concomitant]
     Active Substance: TRAZODONE HYDROCHLORIDE
     Indication: Product used for unknown indication
     Dosage: UNK
     Route: 065
     Dates: start: 20240809

REACTIONS (2)
  - Sinus node dysfunction [Recovered/Resolved]
  - Bradycardia [Recovered/Resolved]

NARRATIVE: CASE EVENT DATE: 20240810
